FAERS Safety Report 4691810-4 (Version None)
Quarter: 2005Q2

REPORT INFORMATION
  Report Type: 
  Country: None (occurrence: None)
  Receive Date: 20050615
  Receipt Date: 20050615
  Transmission Date: 20051028
  Serious: Yes (Other)
  Sender: FDA-Public Use
  Company Number: None

PATIENT
  Age: 24 Year
  Sex: Female
  Weight: 68.0396 kg

DRUGS (2)
  1. RELPAX [Suspect]
     Indication: MIGRAINE
     Dosage: 40MG    AT ONSET OF HA    ORAL
     Route: 048
     Dates: start: 20050501, end: 20050601
  2. YASMIN [Concomitant]

REACTIONS (8)
  - CHEST DISCOMFORT [None]
  - COGNITIVE DISORDER [None]
  - DIZZINESS [None]
  - DYSPNOEA [None]
  - HYPOAESTHESIA [None]
  - MUSCLE FATIGUE [None]
  - SPEECH DISORDER [None]
  - TACHYCARDIA [None]
